FAERS Safety Report 8784817 (Version 1)
Quarter: 2012Q4

REPORT INFORMATION
  Report Type: Spontaneous
  Country: SE (occurrence: None)
  Receive Date: 20120828
  Receipt Date: 20120828
  Transmission Date: 20130627
  Serious: Yes (Hospitalization)
  Sender: FDA-Public Use
  Company Number: DSA_59108_2012

PATIENT
  Age: 90 Year
  Sex: Female

DRUGS (19)
  1. CARDIZEM [Suspect]
     Indication: HYPERTENSION
     Route: 048
  2. OXYNORM [Concomitant]
  3. CYMBALTA [Concomitant]
  4. OMEPRAZOLE [Concomitant]
  5. PRAVASTATIN [Concomitant]
  6. FENTANYL [Concomitant]
  7. FOLACIN [Concomitant]
  8. ALVEDON [Concomitant]
  9. BETAPRED [Concomitant]
  10. SUSCARD [Concomitant]
  11. PANOCOD [Concomitant]
  12. TROMBYL [Concomitant]
  13. NITROLINGUAL [Concomitant]
  14. VISCOTEARS [Concomitant]
  15. COZAAR [Concomitant]
  16. COZAAR COMP [Concomitant]
  17. SIFROL [Concomitant]
  18. MONOKET OD [Concomitant]
  19. LEVAXIN [Concomitant]

REACTIONS (4)
  - Bradycardia [None]
  - Fatigue [None]
  - Asthenia [None]
  - Chest pain [None]
